FAERS Safety Report 6739631-2 (Version None)
Quarter: 2010Q2

REPORT INFORMATION
  Report Type: 
  Country: None (occurrence: None)
  Receive Date: 20100525
  Receipt Date: 20100520
  Transmission Date: 20101027
  Serious: Yes (Other)
  Sender: FDA-Public Use
  Company Number: GB-ROCHE-697023

PATIENT
  Sex: Male
  Weight: 69 kg

DRUGS (1)
  1. CELLCEPT [Suspect]
     Route: 048
     Dates: start: 20091017

REACTIONS (2)
  - MANIA [None]
  - PSYCHOMOTOR HYPERACTIVITY [None]
